FAERS Safety Report 7956580-2 (Version None)
Quarter: 2011Q4

REPORT INFORMATION
  Report Type: 
  Country: None (occurrence: None)
  Receive Date: 20111205
  Receipt Date: 20111129
  Transmission Date: 20120403
  Serious: Yes (Hospitalization)
  Sender: FDA-Public Use
  Company Number: PHHY2011AU100886

PATIENT
  Sex: Female

DRUGS (5)
  1. ZOLEDRONOC ACID [Suspect]
     Dosage: 5 MG, UNK
     Route: 042
     Dates: start: 20101108
  2. ADALAT [Concomitant]
     Dosage: 20 MG, UNK
  3. RABEPRAZOLE SODIUM [Concomitant]
     Dosage: 20 MG, UNK
  4. METOPROLOL [Concomitant]
     Dosage: 50 MG, QD
  5. CRESTOR [Concomitant]
     Dosage: 20 MG, UNK

REACTIONS (2)
  - BLOOD POTASSIUM DECREASED [None]
  - BLOOD CALCIUM DECREASED [None]
